FAERS Safety Report 8406808-X (Version None)
Quarter: 2012Q2

REPORT INFORMATION
  Report Type: 
  Country: None (occurrence: None)
  Receive Date: 20120529
  Receipt Date: 20120518
  Transmission Date: 20120825
  Serious: Yes (Other)
  Sender: FDA-Public Use
  Company Number: AUR-APL-2012-02356

PATIENT
  Age: 91 Year
  Sex: Male
  Weight: 57 kg

DRUGS (2)
  1. MIRTAZAPINE [Suspect]
     Indication: PRODUCT USED FOR UNKNOWN INDICATION
     Dosage: (15 MG, 1 D), ORAL
     Route: 048
  2. LORAZEPAM [Concomitant]

REACTIONS (9)
  - PRE-EXISTING CONDITION IMPROVED [None]
  - TREMOR [None]
  - BLOOD PRESSURE INCREASED [None]
  - SPEECH DISORDER [None]
  - SWELLING FACE [None]
  - PAIN [None]
  - RESTLESSNESS [None]
  - MEDICATION ERROR [None]
  - PULSE PRESSURE INCREASED [None]
